FAERS Safety Report 12290781 (Version 2)
Quarter: 2016Q2

REPORT INFORMATION
  Report Type: Spontaneous
  Country: US (occurrence: US)
  Receive Date: 20160421
  Receipt Date: 20160610
  Transmission Date: 20160815
  Serious: No
  Sender: FDA-Public Use
  Company Number: US-PFIZER INC-2016205985

PATIENT
  Age: 63 Year
  Sex: Female

DRUGS (2)
  1. ASPIRIN. [Concomitant]
     Active Substance: ASPIRIN
     Dosage: 81 MG, UNK
  2. XALATAN [Suspect]
     Active Substance: LATANOPROST
     Indication: GLAUCOMA
     Dosage: ONE DROP EACH EYE, AT NIGHT
     Route: 047
     Dates: start: 2011

REACTIONS (3)
  - Accidental exposure to product [Unknown]
  - Incorrect dose administered [Not Recovered/Not Resolved]
  - Product dropper issue [Unknown]

NARRATIVE: CASE EVENT DATE: 20160406
